FAERS Safety Report 8379056-X (Version None)
Quarter: 2012Q2

REPORT INFORMATION
  Report Type: 
  Country: None (occurrence: None)
  Receive Date: 20120522
  Receipt Date: 20120522
  Transmission Date: 20120825
  Serious: No
  Sender: FDA-Public Use
  Company Number: None

PATIENT
  Age: 85 Year
  Sex: Male

DRUGS (7)
  1. PREDNISONE TAB [Concomitant]
  2. PROTONIX [Concomitant]
  3. LEVOTHYROXINE SODIUM [Concomitant]
  4. ZYTIGA [Suspect]
     Dosage: 1000MG DAILY PO
     Route: 048
     Dates: start: 20120126
  5. CARVEDILOL [Concomitant]
  6. PLAVIX [Concomitant]
  7. LIPITOR [Concomitant]

REACTIONS (2)
  - HYPERTENSION [None]
  - CHEST PAIN [None]
